FAERS Safety Report 7900794-4 (Version None)
Quarter: 2011Q4

REPORT INFORMATION
  Report Type: 
  Country: None (occurrence: None)
  Receive Date: 20111108
  Receipt Date: 20111103
  Transmission Date: 20120403
  Serious: Yes (Death, Hospitalization)
  Sender: FDA-Public Use
  Company Number: US-ASTELLAS-2011US006882

PATIENT
  Sex: Male

DRUGS (4)
  1. ERLOTINIB HYDROCHLORIDE [Suspect]
     Indication: LUNG ADENOCARCINOMA STAGE IV
     Dosage: 150 MG, UID/QD
     Route: 048
     Dates: start: 20110811, end: 20110929
  2. MORPHINE [Concomitant]
     Indication: PRODUCT USED FOR UNKNOWN INDICATION
     Dosage: UNK
     Route: 065
  3. ATIVAN [Concomitant]
     Indication: PRODUCT USED FOR UNKNOWN INDICATION
     Dosage: UNK
     Route: 065
  4. MEGACE [Concomitant]
     Indication: PRODUCT USED FOR UNKNOWN INDICATION
     Dosage: UNK
     Route: 065

REACTIONS (2)
  - PATHOLOGICAL FRACTURE [None]
  - LUNG ADENOCARCINOMA METASTATIC [None]
